FAERS Safety Report 4618995-X (Version None)
Quarter: 2005Q1

REPORT INFORMATION
  Report Type: 
  Country: None (occurrence: None)
  Receive Date: 20050325
  Receipt Date: 20050316
  Transmission Date: 20050727
  Serious: Yes (Death)
  Sender: FDA-Public Use
  Company Number: 200512143US

PATIENT
  Age: 32 Year
  Sex: Female

DRUGS (2)
  1. LOVENOX [Suspect]
     Indication: PULMONARY EMBOLISM
     Dosage: DOSE: UNK
  2. ALBUTEROL [Concomitant]
     Dosage: DOSE: UNK

REACTIONS (1)
  - DEATH [None]
